FAERS Safety Report 11672676 (Version 1)
Quarter: 2015Q4

REPORT INFORMATION
  Report Type: Spontaneous
  Country: GB (occurrence: GB)
  Receive Date: 20151028
  Receipt Date: 20151028
  Transmission Date: 20160304
  Serious: Yes (Other)
  Sender: FDA-Public Use
  Company Number: GB-TEVA-602618ACC

PATIENT
  Age: 71 Year
  Sex: Male
  Weight: 82 kg

DRUGS (12)
  1. OMEPRAZOLE. [Concomitant]
     Active Substance: OMEPRAZOLE
  2. TAMSULOSIN [Concomitant]
     Active Substance: TAMSULOSIN
  3. ASPIRIN. [Concomitant]
     Active Substance: ASPIRIN
  4. DIGITOXIN [Concomitant]
     Active Substance: DIGITOXIN
  5. FOLIC ACID. [Concomitant]
     Active Substance: FOLIC ACID
  6. SPIRONOLACTONE. [Suspect]
     Active Substance: SPIRONOLACTONE
     Indication: CARDIAC FAILURE
     Route: 048
  7. LOSARTAN. [Concomitant]
     Active Substance: LOSARTAN
  8. MONOMIL XL [Concomitant]
  9. ALLOPURINOL. [Concomitant]
     Active Substance: ALLOPURINOL
  10. WARFARIN [Concomitant]
     Active Substance: WARFARIN
  11. BUMETANIDE. [Suspect]
     Active Substance: BUMETANIDE
     Indication: FLUID RETENTION
     Route: 048
  12. BISOPROLOL [Concomitant]
     Active Substance: BISOPROLOL

REACTIONS (1)
  - Breast pain [Not Recovered/Not Resolved]

NARRATIVE: CASE EVENT DATE: 201504
